FAERS Safety Report 25328876 (Version 1)
Quarter: 2025Q2

REPORT INFORMATION
  Report Type: Spontaneous
  Country: US (occurrence: US)
  Receive Date: 20250519
  Receipt Date: 20250519
  Transmission Date: 20250717
  Serious: No
  Sender: SANOFI AVENTIS
  Company Number: US-SA-2025SA141470

PATIENT
  Age: 5 Year
  Sex: Female
  Weight: 28.18 kg

DRUGS (1)
  1. DUPIXENT [Suspect]
     Active Substance: DUPILUMAB
     Indication: Dermatitis atopic
     Dosage: 300 MG, Q4W
     Route: 058
     Dates: start: 202406

REACTIONS (6)
  - Viral infection [Unknown]
  - Illness [Unknown]
  - Dermatitis atopic [Recovering/Resolving]
  - Rash [Recovering/Resolving]
  - Skin swelling [Recovering/Resolving]
  - Scab [Recovering/Resolving]

NARRATIVE: CASE EVENT DATE: 20250101
